FAERS Safety Report 6500060-8 (Version None)
Quarter: 2009Q4

REPORT INFORMATION
  Report Type: 
  Country: None (occurrence: None)
  Receive Date: 20091216
  Receipt Date: 20091207
  Transmission Date: 20100525
  Serious: Yes (Other)
  Sender: FDA-Public Use
  Company Number: US-JNJFOC-20091202628

PATIENT
  Sex: Female
  Weight: 54.89 kg

DRUGS (2)
  1. REMICADE [Suspect]
     Indication: CROHN'S DISEASE
     Route: 042
     Dates: start: 20030101
  2. VICODIN [Concomitant]
     Indication: PAIN

REACTIONS (2)
  - FISTULA [None]
  - INFECTION [None]
